FAERS Safety Report 16165978 (Version 1)
Quarter: 2019Q2

REPORT INFORMATION
  Report Type: Spontaneous
  Country: GB (occurrence: GB)
  Receive Date: 20190406
  Receipt Date: 20190406
  Transmission Date: 20190711
  Serious: Yes (Other)
  Sender: FDA-Public Use
  Company Number: GB-ACCORD-118517

PATIENT
  Age: 78 Year
  Sex: Female
  Weight: 75 kg

DRUGS (12)
  1. ATORVASTATIN/ATORVASTATIN CALCIUM [Suspect]
     Active Substance: ATORVASTATIN CALCIUM
     Indication: PRODUCT USED FOR UNKNOWN INDICATION
     Dosage: ALSO RECEIVED AS CONCOMITANT 1 DF FROM 16-AUG-2018 FOR HIGH CHOLESTEROL.
     Dates: start: 20190101
  2. LOSARTAN. [Concomitant]
     Active Substance: LOSARTAN
     Indication: HYPERTENSION
     Dates: start: 20180518
  3. HYLO-FORTE [Concomitant]
     Active Substance: HYALURONATE SODIUM
     Dosage: USE AS DIRECTED.
     Dates: start: 20180517
  4. RISEDRONIC ACID [Concomitant]
     Active Substance: RISEDRONIC ACID
     Indication: OSTEOPOROSIS PROPHYLAXIS
     Dates: start: 20180517, end: 20181219
  5. AMITRIPTYLINE [Concomitant]
     Active Substance: AMITRIPTYLINE
     Dosage: AT NIGHT
     Dates: start: 20180517
  6. LOPERAMIDE [Concomitant]
     Active Substance: LOPERAMIDE
     Indication: IRRITABLE BOWEL SYNDROME
     Dates: start: 20180517
  7. ALOGLIPTIN. [Concomitant]
     Active Substance: ALOGLIPTIN
     Dates: start: 20181026
  8. SALBUTAMOL [Concomitant]
     Active Substance: ALBUTEROL
     Dosage: FOUR TIMES DAILY, PUFFS
     Route: 055
     Dates: start: 20180517
  9. ADCAL (CALCIUM CARBONATE) [Concomitant]
     Active Substance: CALCIUM CARBONATE
     Dates: start: 20180517, end: 20181219
  10. EZETIMIBE. [Concomitant]
     Active Substance: EZETIMIBE
     Indication: BLOOD CHOLESTEROL INCREASED
     Dates: start: 20190204
  11. OMEPRAZOLE. [Concomitant]
     Active Substance: OMEPRAZOLE
     Indication: DYSPEPSIA
     Dates: start: 20180517
  12. MACROGOL/MACROGOL STEARATE [Concomitant]
     Indication: CONSTIPATION
     Dosage: TAKE ONE OR TWO DAILY
     Dates: start: 20190111

REACTIONS (5)
  - Paraesthesia [Recovered/Resolved]
  - Insomnia [Recovered/Resolved]
  - Blood glucose increased [Unknown]
  - Flatulence [Recovered/Resolved]
  - Arthralgia [Unknown]

NARRATIVE: CASE EVENT DATE: 20190107
